FAERS Safety Report 6029559-8 (Version None)
Quarter: 2009Q1

REPORT INFORMATION
  Report Type: 
  Country: None (occurrence: None)
  Receive Date: 20090107
  Receipt Date: 20081230
  Transmission Date: 20090719
  Serious: Yes (Other)
  Sender: FDA-Public Use
  Company Number: US-ASTRAZENECA-2007UW24642

PATIENT
  Age: 70 Year
  Sex: Female
  Weight: 72.6 kg

DRUGS (14)
  1. ARIMIDEX [Suspect]
     Indication: BREAST CANCER STAGE II
     Route: 048
     Dates: start: 20041001, end: 20070901
  2. ARIMIDEX [Suspect]
     Route: 048
     Dates: start: 20071108
  3. METFORMIN HCL [Concomitant]
  4. GLYPAZIDE [Concomitant]
  5. FISH OIL [Concomitant]
  6. AVANDIA [Concomitant]
  7. AVANDARYL [Concomitant]
     Dosage: I DAILY
     Route: 048
  8. ACTOPLUS MET [Concomitant]
     Dosage: 15/850 IN AM; 15/500 IN PM
  9. VITAMIN E [Concomitant]
  10. CALCIUM CARBONATE [Concomitant]
  11. FOLIC ACID [Concomitant]
     Route: 048
  12. SLOW FE [Concomitant]
  13. ASPIRIN [Concomitant]
  14. DIOVAN [Concomitant]

REACTIONS (10)
  - ARTHRALGIA [None]
  - CARDIAC FAILURE CONGESTIVE [None]
  - DYSPNOEA [None]
  - ERYTHEMA [None]
  - FATIGUE [None]
  - IRON DEFICIENCY ANAEMIA [None]
  - JOINT SWELLING [None]
  - LUNG DISORDER [None]
  - MYOCARDIAL INFARCTION [None]
  - NIGHT SWEATS [None]
